FAERS Safety Report 8817109 (Version 1)
Quarter: 2012Q4

REPORT INFORMATION
  Report Type: Spontaneous
  Country: US (occurrence: None)
  Receive Date: 20121003
  Receipt Date: 20121003
  Transmission Date: 20130627
  Serious: No
  Sender: FDA-Public Use
  Company Number: None

PATIENT
  Age: 74 Year
  Sex: Female
  Weight: 82.56 kg

DRUGS (3)
  1. LEVOFLOXACIN [Suspect]
     Indication: PHLEGM
     Dosage: 1 a day
     Dates: start: 20120831, end: 20120909
  2. LEVOFLOXACIN [Suspect]
     Indication: LUNG DISORDER
     Dosage: 1 a day
     Dates: start: 20120831, end: 20120909
  3. LEVOFLOXACIN [Concomitant]

REACTIONS (4)
  - Tendon pain [None]
  - Arthralgia [None]
  - Pain in extremity [None]
  - Groin pain [None]
